FAERS Safety Report 23208223 (Version 1)
Quarter: 2023Q4

REPORT INFORMATION
  Report Type: Spontaneous
  Country: DE (occurrence: DE)
  Receive Date: 20231121
  Receipt Date: 20231121
  Transmission Date: 20240110
  Serious: Yes (Other)
  Sender: FDA-Public Use
  Company Number: DE-UCBSA-2023037138

PATIENT
  Sex: Male

DRUGS (3)
  1. LAMOTRIGINE [Suspect]
     Active Substance: LAMOTRIGINE
     Indication: Product used for unknown indication
     Dosage: UNK
  2. BRIVARACETAM [Suspect]
     Active Substance: BRIVARACETAM
     Indication: Product used for unknown indication
     Dosage: UNK
  3. VALPROATE [Concomitant]
     Active Substance: VALPROIC ACID
     Indication: Product used for unknown indication

REACTIONS (18)
  - Epilepsy [Unknown]
  - Umbilical haemorrhage [Unknown]
  - Restlessness [Unknown]
  - Sleep disorder [Unknown]
  - Lip injury [Unknown]
  - Muscle twitching [Unknown]
  - Anger [Unknown]
  - Pruritus [Unknown]
  - Lip haemorrhage [Unknown]
  - Subcutaneous abscess [Unknown]
  - Eating disorder [Unknown]
  - Weight decreased [Unknown]
  - Tremor [Unknown]
  - Alopecia [Unknown]
  - Aggression [Not Recovered/Not Resolved]
  - Hypersensitivity [Unknown]
  - Insomnia [Unknown]
  - Inability to afford medication [Unknown]
